FAERS Safety Report 18950260 (Version 2)
Quarter: 2021Q2

REPORT INFORMATION
  Report Type: Spontaneous
  Country: US (occurrence: US)
  Receive Date: 20210228
  Receipt Date: 20210413
  Transmission Date: 20210717
  Serious: Yes (Hospitalization, Other)
  Sender: FDA-Public Use
  Company Number: US-TEVA-2021-US-1883745

PATIENT
  Sex: Female

DRUGS (6)
  1. SOLIFENACIN [Concomitant]
     Active Substance: SOLIFENACIN
     Dosage: 5 MILLIGRAM DAILY;
     Route: 065
  2. ALPRAZOLAM. [Concomitant]
     Active Substance: ALPRAZOLAM
     Indication: ANXIETY
     Dosage: AS NEEDED
     Route: 065
  3. DULOXETINE. [Suspect]
     Active Substance: DULOXETINE
     Indication: NEURALGIA
     Dosage: 30 MG IN THE MORNING AND 30 MG IN THE AFTERNOON
     Route: 065
     Dates: start: 201812
  4. DULOXETINE. [Suspect]
     Active Substance: DULOXETINE
     Route: 065
     Dates: start: 20200301, end: 202006
  5. DULOXETINE. [Suspect]
     Active Substance: DULOXETINE
     Route: 065
     Dates: start: 20200201
  6. DULOXETINE. [Suspect]
     Active Substance: DULOXETINE
     Dosage: 60 MG IN AM AND 30 MG IN AFTERNOON
     Route: 065

REACTIONS (37)
  - Tremor [Unknown]
  - Respiratory distress [Recovered/Resolved]
  - Choking sensation [Unknown]
  - Muscle rigidity [Unknown]
  - Shock [Unknown]
  - Fall [Unknown]
  - Aspartate aminotransferase increased [Unknown]
  - Drug ineffective [Unknown]
  - Vomiting [Unknown]
  - Liver injury [Unknown]
  - Cardiac disorder [Recovered/Resolved]
  - Fatigue [Unknown]
  - Mood altered [Unknown]
  - Dizziness [Unknown]
  - Dyspnoea [Unknown]
  - Head discomfort [Unknown]
  - Serotonin syndrome [Unknown]
  - Heart rate irregular [Recovered/Resolved]
  - Cough [Unknown]
  - Nausea [Unknown]
  - Blood pressure fluctuation [Unknown]
  - Hepatic cirrhosis [Unknown]
  - Loss of consciousness [Unknown]
  - Myalgia [Unknown]
  - Palpitations [Unknown]
  - Musculoskeletal stiffness [Unknown]
  - Head injury [Unknown]
  - Intervertebral disc protrusion [Unknown]
  - Chest discomfort [Unknown]
  - Temperature intolerance [Unknown]
  - Paranoia [Unknown]
  - Feeding disorder [Unknown]
  - Impaired work ability [Unknown]
  - Anxiety [Unknown]
  - Fear [Unknown]
  - Chest pain [Unknown]
  - Emotional disorder [Unknown]

NARRATIVE: CASE EVENT DATE: 2020
